FAERS Safety Report 8347757-5 (Version None)
Quarter: 2012Q2

REPORT INFORMATION
  Report Type: 
  Country: None (occurrence: None)
  Receive Date: 20120509
  Receipt Date: 20120501
  Transmission Date: 20120825
  Serious: Yes (Hospitalization)
  Sender: FDA-Public Use
  Company Number: US-GLAXOSMITHKLINE-A0914637A

PATIENT
  Age: 59 Year
  Sex: Female
  Weight: 84.5 kg

DRUGS (12)
  1. AMARYL [Concomitant]
  2. TRAMADOL HYDROCHLORIDE [Concomitant]
  3. PREDNISOLONE [Concomitant]
  4. AVANDIA [Suspect]
     Indication: DIABETES MELLITUS
     Dosage: 4MG TWICE PER DAY
     Route: 048
     Dates: start: 20041201, end: 20071201
  5. GLYBURIDE [Concomitant]
  6. AVAPRO [Concomitant]
  7. ZETIA [Concomitant]
  8. PREVACID [Concomitant]
  9. COREG [Concomitant]
  10. METHOTREXATE [Concomitant]
  11. SINGULAIR [Concomitant]
  12. TRICOR [Concomitant]

REACTIONS (2)
  - MACULAR DEGENERATION [None]
  - MYOCARDIAL INFARCTION [None]
